FAERS Safety Report 13229920 (Version 2)
Quarter: 2017Q1

REPORT INFORMATION
  Report Type: Spontaneous
  Country: US (occurrence: US)
  Receive Date: 20170214
  Receipt Date: 20170309
  Transmission Date: 20170428
  Serious: No
  Sender: FDA-Public Use
  Company Number: US-PFIZER INC-2017061193

PATIENT
  Age: 74 Year
  Sex: Female

DRUGS (12)
  1. SIMVASTATIN. [Concomitant]
     Active Substance: SIMVASTATIN
     Indication: BLOOD CHOLESTEROL
     Dosage: UNK, EVERY NIGHT
  2. ALLERGY RELIEF [Concomitant]
     Dosage: UNK UNK, 1X/DAY
  3. BIOTIN [Concomitant]
     Active Substance: BIOTIN
     Dosage: UNK, 1X/DAY
  4. OMEGA 3 FISH OIL [Concomitant]
     Active Substance: FISH OIL\OMEGA-3 FATTY ACIDS
     Dosage: UNK, 1X/DAY
  5. IBUPROFEN. [Concomitant]
     Active Substance: IBUPROFEN
     Dosage: 800 MG ONCE IN A WHILE
  6. XELJANZ [Suspect]
     Active Substance: TOFACITINIB CITRATE
     Dosage: 5 MG, 2X/DAY
     Dates: start: 201601
  7. GEL TAB [Concomitant]
     Dosage: UNK
  8. CELECOXIB. [Concomitant]
     Active Substance: CELECOXIB
     Dosage: 200 MG NOT OFTEN ONCE IN A WHILE
  9. RANITIDINE. [Concomitant]
     Active Substance: RANITIDINE
     Dosage: UNK, 1X/DAY`
  10. LEVOCETIRIZINE [Concomitant]
     Active Substance: LEVOCETIRIZINE
     Dosage: UNK, 1X/DAY
  11. VITAMIN D3 [Concomitant]
     Active Substance: CHOLECALCIFEROL
     Dosage: UNK, 1X/DAY
  12. TRIAMTERENE. [Concomitant]
     Active Substance: TRIAMTERENE
     Dosage: UNK, 1X/DAY

REACTIONS (2)
  - Pain in extremity [Not Recovered/Not Resolved]
  - Inflammation [Unknown]

NARRATIVE: CASE EVENT DATE: 201601
